FAERS Safety Report 14542853 (Version 2)
Quarter: 2018Q1

REPORT INFORMATION
  Report Type: Report from Study
  Country: US (occurrence: US)
  Receive Date: 20180216
  Receipt Date: 20180302
  Transmission Date: 20180509
  Serious: Yes (Hospitalization, Other)
  Sender: FDA-Public Use
  Company Number: US-MALLINCKRODT-T201800560

PATIENT
  Sex: Male

DRUGS (2)
  1. REPOSITORY CORTICOTROPIN INJECTION [Suspect]
     Active Substance: CORTICOTROPIN
     Indication: NEPHROTIC SYNDROME
  2. REPOSITORY CORTICOTROPIN INJECTION [Suspect]
     Active Substance: CORTICOTROPIN
     Indication: PROTEINURIA
     Dosage: 80 UNITS / 1 ML,  2 TIMES PER WEEK (THURSDAY/SUNDAY)
     Route: 058
     Dates: start: 20170806

REACTIONS (8)
  - Polyuria [Unknown]
  - Blood glucose increased [Recovering/Resolving]
  - Kidney infection [Unknown]
  - Oedema peripheral [Unknown]
  - Dry mouth [Unknown]
  - Dyspnoea [Unknown]
  - Weight increased [Unknown]
  - Glycosylated haemoglobin increased [Unknown]
